FAERS Safety Report 21639261 (Version 1)
Quarter: 2022Q4

REPORT INFORMATION
  Report Type: Spontaneous
  Country: ES (occurrence: ES)
  Receive Date: 20221124
  Receipt Date: 20221124
  Transmission Date: 20230112
  Serious: Yes (Other)
  Sender: FDA-Public Use
  Company Number: ES-ORGANON-O2211ESP001772

PATIENT
  Age: 39 Year
  Sex: Female

DRUGS (1)
  1. ETONOGESTREL [Suspect]
     Active Substance: ETONOGESTREL
     Dosage: 1 IMPLANT
     Route: 059
     Dates: start: 202005

REACTIONS (2)
  - Pregnancy with implant contraceptive [Not Recovered/Not Resolved]
  - Unintended pregnancy [Not Recovered/Not Resolved]

NARRATIVE: CASE EVENT DATE: 20221020
